FAERS Safety Report 10582632 (Version 2)
Quarter: 2015Q1

REPORT INFORMATION
  Report Type: Spontaneous
  Country: DE (occurrence: DE)
  Receive Date: 20141113
  Receipt Date: 20150107
  Transmission Date: 20150720
  Serious: Yes (Death, Other)
  Sender: FDA-Public Use
  Company Number: DE-GILEAD-2014-0122388

PATIENT
  Age: 3 Month
  Sex: Male

DRUGS (12)
  1. COFFEIN [Concomitant]
     Active Substance: CAFFEINE
  2. HCT [Concomitant]
     Active Substance: HYDROCHLOROTHIAZIDE
  3. SPIRONOLACTONE. [Concomitant]
     Active Substance: SPIRONOLACTONE
  4. AMBRISENTAN [Suspect]
     Active Substance: AMBRISENTAN
     Indication: PULMONARY HYPERTENSION
     Dosage: 1 MG, BID
     Route: 048
     Dates: start: 20141020, end: 20141022
  5. AMBRISENTAN [Suspect]
     Active Substance: AMBRISENTAN
     Dosage: 0.25 MG, BID
     Route: 048
     Dates: start: 20141022, end: 20141027
  6. NIFEDIPIN [Concomitant]
     Active Substance: NIFEDIPINE
  7. THEOPHYLLIN [Concomitant]
     Active Substance: THEOPHYLLINE ANHYDROUS
  8. ACC                                /00082801/ [Concomitant]
  9. FERRO SANOL [Concomitant]
     Active Substance: FERROUS SULFATE\GLYCINE
  10. VITAMIN A                          /00056001/ [Concomitant]
     Active Substance: RETINOL
  11. SILDENAFIL. [Concomitant]
     Active Substance: SILDENAFIL
     Indication: PULMONARY HYPERTENSION
     Dosage: UNK
     Route: 065
     Dates: start: 2014
  12. CAPTOPRIL. [Concomitant]
     Active Substance: CAPTOPRIL

REACTIONS (3)
  - Oxygen saturation decreased [Recovered/Resolved]
  - Pulmonary hypertensive crisis [Fatal]
  - Off label use [Unknown]

NARRATIVE: CASE EVENT DATE: 201410
